FAERS Safety Report 15305792 (Version 2)
Quarter: 2018Q3

REPORT INFORMATION
  Report Type: Spontaneous
  Country: CA (occurrence: CA)
  Receive Date: 20180822
  Receipt Date: 20180829
  Transmission Date: 20181010
  Serious: Yes (Other)
  Sender: FDA-Public Use
  Company Number: CA-ROCHE-2171430

PATIENT
  Age: 67 Year
  Sex: Male

DRUGS (6)
  1. PREDNISONE. [Concomitant]
     Active Substance: PREDNISONE
  2. RITUXAN [Suspect]
     Active Substance: RITUXIMAB
     Indication: RHEUMATOID ARTHRITIS
     Dosage: 500 MG (10 MG/ML)
     Route: 042
     Dates: start: 20171121
  3. FENTANYL. [Concomitant]
     Active Substance: FENTANYL
     Dosage: PAIN PATCH Q 72 HOURS
     Route: 065
  4. CYMBALTA [Concomitant]
     Active Substance: DULOXETINE HYDROCHLORIDE
     Route: 065
     Dates: start: 201307
  5. METHOTREXATE. [Concomitant]
     Active Substance: METHOTREXATE
  6. LYRICA [Concomitant]
     Active Substance: PREGABALIN

REACTIONS (9)
  - Hypotension [Not Recovered/Not Resolved]
  - Asthenia [Not Recovered/Not Resolved]
  - Hypotension [Not Recovered/Not Resolved]
  - Nausea [Not Recovered/Not Resolved]
  - Cold sweat [Not Recovered/Not Resolved]
  - Heart rate irregular [Not Recovered/Not Resolved]
  - Malaise [Unknown]
  - Oxygen saturation decreased [Not Recovered/Not Resolved]
  - Pallor [Not Recovered/Not Resolved]

NARRATIVE: CASE EVENT DATE: 20180816
